FAERS Safety Report 8842717 (Version 1)
Quarter: 2012Q4

REPORT INFORMATION
  Report Type: 
  Country: US (occurrence: US)
  Receive Date: 20121016
  Receipt Date: 20121016
  Transmission Date: 20130627
  Serious: No
  Sender: FDA-Public Use
  Company Number: US-ASTRAZENECA-2012SE76303

PATIENT
  Age: 60 Year
  Sex: Male

DRUGS (5)
  1. LISINOPRIL [Suspect]
     Route: 048
  2. METOPROLOL [Suspect]
     Route: 065
  3. BRILINTA [Suspect]
     Route: 048
  4. UNSPECIFIED INGREDIENT [Suspect]
     Route: 065
  5. CARVEDILOL [Concomitant]

REACTIONS (2)
  - Pruritus generalised [Unknown]
  - Swelling face [Unknown]
